FAERS Safety Report 8990908 (Version 1)
Quarter: 2012Q4

REPORT INFORMATION
  Report Type: Spontaneous
  Country: US (occurrence: None)
  Receive Date: 20121226
  Receipt Date: 20121226
  Transmission Date: 20130627
  Serious: Yes (Other)
  Sender: FDA-Public Use
  Company Number: None

PATIENT
  Age: 52 Year
  Sex: Female
  Weight: 104.78 kg

DRUGS (1)
  1. HYDROCODONE [Suspect]
     Dosage: 10/325 q 6(degree) prn

REACTIONS (1)
  - No therapeutic response [None]
